FAERS Safety Report 9769102 (Version 2)
Quarter: 2013Q4

REPORT INFORMATION
  Report Type: Report from Study
  Country: DE (occurrence: DE)
  Receive Date: 20131218
  Receipt Date: 20131218
  Transmission Date: 20140711
  Serious: Yes (Other)
  Sender: FDA-Public Use
  Company Number: DE-ROCHE-775754

PATIENT
  Age: 38 Year
  Sex: Female
  Weight: 51.8 kg

DRUGS (6)
  1. PEG-INTERFERON ALFA 2A [Suspect]
     Indication: HEPATITIS D
     Route: 058
     Dates: start: 20101102, end: 20110504
  2. BLINDED TENOFOVIR [Suspect]
     Indication: HEPATITIS D
     Route: 048
     Dates: start: 20101102, end: 20110504
  3. PANTOPRAZOLE [Concomitant]
     Route: 048
     Dates: start: 201009, end: 20101227
  4. PANTOPRAZOLE [Concomitant]
     Route: 048
  5. PARACETAMOL [Concomitant]
     Indication: PAIN
     Route: 048
     Dates: start: 20101104, end: 20101116
  6. PARACETAMOL [Concomitant]
     Route: 048

REACTIONS (2)
  - Abortion spontaneous [Unknown]
  - Maternal exposure during pregnancy [Unknown]
